FAERS Safety Report 25412918 (Version 2)
Quarter: 2025Q4

REPORT INFORMATION
  Report Type: Spontaneous
  Country: US (occurrence: US)
  Receive Date: 20250609
  Receipt Date: 20251014
  Transmission Date: 20260117
  Serious: No
  Sender: KALEO, INC.
  Company Number: US-KALEO, INC.-2025KL000012

PATIENT
  Age: 21 Year
  Sex: Male

DRUGS (2)
  1. AUVI-Q [Suspect]
     Active Substance: EPINEPHRINE
     Dosage: UNK, ZERO
  2. AUVI-Q [Suspect]
     Active Substance: EPINEPHRINE

REACTIONS (1)
  - No device malfunction [Not Recovered/Not Resolved]
